FAERS Safety Report 25747407 (Version 2)
Quarter: 2025Q4

REPORT INFORMATION
  Report Type: Spontaneous
  Country: US (occurrence: US)
  Receive Date: 20250901
  Receipt Date: 20251008
  Transmission Date: 20260118
  Serious: Yes (Other)
  Sender: MERCK SHARP & DOHME LLC
  Company Number: US-009507513-2324151

PATIENT
  Age: 80 Year
  Sex: Female
  Weight: 77.111 kg

DRUGS (45)
  1. WINREVAIR [Suspect]
     Active Substance: SOTATERCEPT-CSRK
     Indication: Pulmonary arterial hypertension
     Dosage: 5 DOSES (0.7 MG/KG) 91 DAYS
     Route: 058
     Dates: start: 20250129
  2. WINREVAIR [Suspect]
     Active Substance: SOTATERCEPT-CSRK
  3. WINREVAIR [Suspect]
     Active Substance: SOTATERCEPT-CSRK
  4. WINREVAIR [Suspect]
     Active Substance: SOTATERCEPT-CSRK
  5. UPTRAVI [Suspect]
     Active Substance: SELEXIPAG
     Dosage: 800 MCG TABLET
     Route: 048
  6. UPTRAVI [Suspect]
     Active Substance: SELEXIPAG
     Dosage: 1,000 MCG TABLET
     Route: 048
  7. UPTRAVI [Suspect]
     Active Substance: SELEXIPAG
     Route: 048
  8. MACITENTAN [Concomitant]
     Active Substance: MACITENTAN
     Dosage: 10 MG TABLET; TAKE 1 TABLET (10 MG 30 TABLET TOTAL) BY MOUTH EVERY EVENING.
     Route: 048
  9. RIOCIGUAT [Concomitant]
     Active Substance: RIOCIGUAT
     Dosage: TIME INTERVAL: 0.33333333 DAYS: 2.5 MG TABLET
     Route: 048
  10. BUMEX [Concomitant]
     Active Substance: BUMETANIDE
     Dosage: 1 MG TABLET; TAKE 1 TABLET (1 MG 90 TABLET TOTAL) BY MOUTH EVERY MORNING.
     Route: 048
  11. TYLENOL [Concomitant]
     Active Substance: ACETAMINOPHEN
     Indication: Pain
     Dosage: 500 MG TABLET; TAKE 1 TABLET (500 MG TOTAL) BY MOUTH EVERY 6 {SIX) HOURS AS NEEDED (1 TO 2 TABLET)
     Route: 048
  12. ibuprofen (ADVIL) [Concomitant]
     Indication: Pain
     Dosage: TIME INTERVAL: AS NECESSARY: 200 MG TABLET; TAKE 1 TABLET (200 MG TOTAL) BY MOUTH AS NEEDED FOR M...
     Route: 048
  13. loperamide (IMODIUM) [Concomitant]
     Indication: Diarrhoea
     Dosage: TIME INTERVAL: AS NECESSARY: 2 MG CAPSULE;
     Route: 048
  14. VITAMIN A [Concomitant]
     Active Substance: VITAMIN A
     Dosage: 10000 UNIT CAPSULE
     Route: 048
  15. METOLAZONE [Concomitant]
     Active Substance: METOLAZONE
     Dosage: TAKE 2.5 MG BY MOUTH ONCE A WEEK. ON MONDAY
     Route: 048
  16. SYNTHROID [Concomitant]
     Active Substance: LEVOTHYROXINE SODIUM
     Dosage: 50 MCG TABLET; EVERY MORNING
     Route: 048
  17. dapagliflozin propanediol (Farxiga) [Concomitant]
     Dosage: 5 MG TABLET
     Route: 048
  18. spironolactone (ALDACTONE) [Concomitant]
     Dosage: 50 MG TABLET
     Route: 048
  19. BIOTIN [Concomitant]
     Active Substance: BIOTIN
     Dosage: 10,000 MCG CAPSULE, EVERY MORNING
     Route: 048
  20. CHOLECALCIFEROL, VITAMIN D3 [Concomitant]
     Dosage: 5000 UNITS ORAL DAILY
     Route: 048
  21. ESTRACE [Concomitant]
     Active Substance: ESTRADIOL
     Dosage: 0.01 %; 1 APPLICATION EVERY OTHER WEEK
     Route: 067
  22. FOLVITE [Concomitant]
     Active Substance: FOLIC ACID
     Dosage: 400 MCG TABLET
     Route: 048
  23. MELATONIN [Concomitant]
     Active Substance: MELATONIN
     Dosage: 5 MG TABLET; CHEW 1 CHEWABLE TABLET(S) NIGHTLY
     Route: 048
  24. naproxen sodium (ALEVE) [Concomitant]
     Indication: Pain
     Dosage: TIME INTERVAL: AS NECESSARY: 220 MG TABLET
     Route: 048
  25. omega-3s/dha/epa/fish oil (OMEGA 3 ORAL) [Concomitant]
     Dosage: TAKE 1,280 MG BY MOUTH EVERY EVENING
     Route: 048
  26. ZOFRAN [Concomitant]
     Active Substance: ONDANSETRON HYDROCHLORIDE
     Indication: Nausea
     Dosage: TIME INTERVAL: AS NECESSARY: 4 MG TABLET
     Route: 048
  27. LYRICA [Concomitant]
     Active Substance: PREGABALIN
     Dosage: 50 MG CAPSULE; TAKE 2 CAPSULES (100 MG TOTAL) BY MOUTH NIGHTLY
     Route: 048
  28. LYRICA [Concomitant]
     Active Substance: PREGABALIN
     Dosage: 50 MG CAPSULE; TAKE 1 CAPSULE (50 MG TOTAL) BY MOUTH EVERY MORNING.
     Route: 048
  29. trazodone (DESYREL) [Concomitant]
     Dosage: 300 MG TABLET; TAKE 1 TABLET (300 MG TOTAL) BY MOUTH NIGHTLY.
     Route: 048
  30. fluticasone propion-salmeterol (ADVAIR/ WIXELA INHUB) [Concomitant]
     Dosage: 250-50 MCG/DOSE DISKUS; INHALE 1 PUFF 2 (TWO) 60 EACH TIMES A DAY.
  31. potassium chloride (K-DUR) [Concomitant]
     Dosage: 20 MEQ CR (CONTROLLED RELEASE) TABLET
     Route: 048
  32. PROTONIX [Concomitant]
     Active Substance: PANTOPRAZOLE SODIUM
     Dosage: 40 MG EC (ENTERIC COATED) TABLET; TAKE 1 TABLET BY 180 TABLET MOUTH TWICE A DAY BEFORE A MEAL
     Route: 048
  33. vibegron {Gemtesa) [Concomitant]
     Dosage: 75 MG TABLET
     Route: 048
  34. SIMBRINZA [Concomitant]
     Active Substance: BRIMONIDINE TARTRATE\BRINZOLAMIDE
     Dosage: 1-0.2 % DROPS.SUSPENSION
  35. calcium carbonate (CALCIUM 600 ORAL) [Concomitant]
     Dosage: TAKE 1 TABLET BY MOUTH DAILY. BID
     Route: 048
  36. FLEXERIL [Concomitant]
     Active Substance: CYCLOBENZAPRINE HYDROCHLORIDE
     Indication: Muscle spasms
     Dosage: 5 MG TABLET; TAKE 1 TABLET (5 MG TOTAL) BY MOUTH 3 (THREE) TIMES A DAY AS NEEDED FOR (3 TO 4X A D...
     Route: 048
  37. ALLEGRA [Concomitant]
     Active Substance: FEXOFENADINE HYDROCHLORIDE
     Dosage: 180 MG TABLET; TAKE 1 TABLET (180 MG TOTAL) BY MOUTH EVERY EVENING.
     Route: 048
  38. XIIDRA [Concomitant]
     Active Substance: LIFITEGRAST
     Dosage: 5 % DROPPERETTE; 1 DROP EACH EYE TWICE A DAY
  39. metoprolol succinate XL (TOPROL-XL) [Concomitant]
     Dosage: 50 MG 24 HR TABLET;
     Route: 004
  40. doxepin (SINEquan) [Concomitant]
     Dosage: 25 MG CAPSULE; TAKE 1 CAPSULE (25 MG TOTAL) BY MOUTH EVERY EVENING
     Route: 048
  41. VYZULTA [Concomitant]
     Active Substance: LATANOPROSTENE BUNOD
     Dosage: 0.024 % DROPS OPTHALMIC SOLUTION; ADMINISTER 1 DROP TO BOTH EYES NIGHTLY.
     Route: 047
  42. LIDODERM [Concomitant]
     Active Substance: LIDOCAINE
     Dosage: 5 %; PLACE 1 PATCH ON THE SKIN DAILY. REMOVE + DISCARD PATCH WITHIN 12 HOURS OR AS DIRECTED BY MD...
     Route: 003
  43. psyllium (METAMUCIL) [Concomitant]
     Indication: Constipation
     Dosage: TIME INTERVAL: AS NECESSARY: 0.52 GRAM CAPSULE
     Route: 048
  44. VIIBRYD [Concomitant]
     Active Substance: VILAZODONE HYDROCHLORIDE
     Dosage: 40 MG TABLET; TAKE 1 TABLET (40 MG TOTAL) BY MOUTH EVERY MORNING.
     Route: 048
  45. FLONASE [Concomitant]
     Active Substance: FLUTICASONE PROPIONATE
     Dosage: 50 MCG/ACTUATION NASAL SPRAY; 1 SPRAY (50 MCG TOTAL) BY EACH NARIS ROUTE DAILY.
     Route: 045

REACTIONS (8)
  - Pericardial effusion [Recovering/Resolving]
  - Product dose omission issue [Unknown]
  - Diarrhoea [Unknown]
  - Vomiting [Unknown]
  - Headache [Unknown]
  - Neuralgia [Unknown]
  - Lipoma [Unknown]
  - Arthralgia [Unknown]

NARRATIVE: CASE EVENT DATE: 20250425
